FAERS Safety Report 19170849 (Version 1)
Quarter: 2021Q2

REPORT INFORMATION
  Report Type: Other
  Country: IT (occurrence: IT)
  Receive Date: 20210423
  Receipt Date: 20210423
  Transmission Date: 20210717
  Serious: Yes (Hospitalization)
  Sender: FDA-Public Use
  Company Number: IT-CELLTRION INC.-2021IT005331

PATIENT

DRUGS (30)
  1. LOPERAMIDE [Concomitant]
     Active Substance: LOPERAMIDE
     Dosage: ONGOING = CHECKED
     Dates: start: 20170513
  2. DESAMETASONE [Concomitant]
     Active Substance: DEXAMETHASONE
     Dosage: ONGOING = CHECKED
     Dates: start: 20170407
  3. LANSOPRAZOLO [Concomitant]
     Active Substance: LANSOPRAZOLE
     Indication: UPPER GASTROINTESTINAL HAEMORRHAGE
     Dosage: ONGOING = CHECKED
     Dates: start: 20170513
  4. PARACETAMOL [Concomitant]
     Active Substance: ACETAMINOPHEN
     Dosage: ONGOING = CHECKED
     Dates: start: 20170825
  5. RANITIDINA [RANITIDINE] [Concomitant]
     Active Substance: RANITIDINE
     Dosage: UNK
     Dates: start: 20190530
  6. NORVASC [Concomitant]
     Active Substance: AMLODIPINE BESYLATE
     Dosage: ONGOING = CHECKED
  7. MORPHINE SULFATE. [Concomitant]
     Active Substance: MORPHINE SULFATE
     Dosage: UNK
     Dates: start: 20190608
  8. SODIUM ALGINATE;SODIUM BICARBONATE [Concomitant]
     Active Substance: SODIUM ALGINATE\SODIUM BICARBONATE
     Dosage: ONGOING = CHECKED
     Dates: start: 20170606
  9. IDROCLOROTIAZIDE [Concomitant]
     Active Substance: HYDROCHLOROTHIAZIDE
     Dosage: ONGOING = CHECKED
  10. PANTOPRAZOLE [Concomitant]
     Active Substance: PANTOPRAZOLE
     Dosage: UNK
     Dates: start: 20170606, end: 20190530
  11. PERTUZUMAB. [Suspect]
     Active Substance: PERTUZUMAB
     Indication: BREAST CANCER
     Dosage: 840 MG EVERY 3 WEEKS ? MOST RECENT DOSE PRIOR TO THE EVENT: 28/APR/2017
     Route: 042
     Dates: start: 20170407, end: 20170407
  12. PARACETAMOL [Concomitant]
     Active Substance: ACETAMINOPHEN
     Dosage: ONGOING = CHECKED
     Dates: start: 20170407
  13. ALLOPURINOL. [Concomitant]
     Active Substance: ALLOPURINOL
     Dosage: ONGOING = CHECKED
  14. PARACETAMOL+CODEIN [Concomitant]
     Active Substance: ACETAMINOPHEN\CODEINE PHOSPHATE
     Dosage: ONGOING = CHECKED
     Dates: start: 20171116
  15. LETROZOLE. [Suspect]
     Active Substance: LETROZOLE
     Indication: BREAST CANCER
     Dosage: 2.5 MG, DAILY ? MOST RECENT DOSE: 07/DEC/2017
     Route: 048
     Dates: start: 20170616, end: 20171207
  16. OXYCODONE [Concomitant]
     Active Substance: OXYCODONE
     Dosage: UNK
     Dates: start: 20190608
  17. DULOXETINE. [Concomitant]
     Active Substance: DULOXETINE
     Dosage: ONGOING = CHECKED
  18. ENOXAPARIN [Concomitant]
     Active Substance: ENOXAPARIN
     Dosage: UNK
     Dates: start: 20190613
  19. TRASTUZUMAB (UNKNOWN) [Suspect]
     Active Substance: TRASTUZUMAB
     Indication: BREAST CANCER
     Dosage: 760 MG EVERY 3 WEEK ? MOST RECENT DOSE PRIOR TO THE EVENT: , 19/MAY/2017, 20/NOV/2018
     Route: 042
     Dates: start: 20170407, end: 20170407
  20. TRASTUZUMAB EMTANSINE [Suspect]
     Active Substance: ADO-TRASTUZUMAB EMTANSINE
     Indication: BREAST CANCER
     Dosage: 324 MG EVERY 3 WEEKS ? MOST RECENT DOSE: 06/JUN/2018
     Route: 042
     Dates: start: 20180606, end: 20190509
  21. SUCRALFATO [Concomitant]
     Active Substance: SUCRALFATE
     Indication: UPPER GASTROINTESTINAL HAEMORRHAGE
     Dosage: ONGOING = CHECKED
     Dates: start: 20170508
  22. TRASTUZUMAB (UNKNOWN) [Suspect]
     Active Substance: TRASTUZUMAB
     Indication: BREAST CANCER
     Dosage: 528 MG EVERRY 3 WEEKS
     Route: 041
     Dates: start: 20190307, end: 20190509
  23. EXEMESTANE. [Suspect]
     Active Substance: EXEMESTANE
     Indication: BREAST CANCER
     Dosage: UNK, DAILY ? MOST RECENT DOSE: 04/JUN/2018
     Route: 048
     Dates: start: 20171207
  24. ALPRAZOLAM. [Concomitant]
     Active Substance: ALPRAZOLAM
     Dosage: UNK
     Dates: start: 20190530
  25. KCL [Concomitant]
     Active Substance: POTASSIUM CHLORIDE
     Dosage: ONGOING = CHECKED
     Dates: start: 20170515
  26. PACLITAXEL. [Suspect]
     Active Substance: PACLITAXEL
     Indication: BREAST CANCER
     Dosage: 160 MG ? MOST RECENT DOSE: 02/JUN/2017
     Route: 042
     Dates: start: 20170407, end: 20170602
  27. TELMISARTAN. [Concomitant]
     Active Substance: TELMISARTAN
     Dosage: ONGOING = CHECKED
  28. PREDNISONE. [Concomitant]
     Active Substance: PREDNISONE
     Indication: ASTHENIA
     Dosage: UNK
     Dates: start: 20190530
  29. ONDANSETRON [Concomitant]
     Active Substance: ONDANSETRON
     Dosage: UNK
     Dates: start: 20190622, end: 20190704
  30. CLORFENAMINA MALEATO [Concomitant]
     Dosage: ONGOING = CHECKED
     Dates: start: 20170407

REACTIONS (2)
  - Asthenia [Recovered/Resolved]
  - Underdose [Unknown]

NARRATIVE: CASE EVENT DATE: 20190530
